FAERS Safety Report 8614116-7 (Version None)
Quarter: 2012Q3

REPORT INFORMATION
  Report Type: 
  Country: None (occurrence: None)
  Receive Date: 20120823
  Receipt Date: 20120815
  Transmission Date: 20120928
  Serious: Yes (Hospitalization, Other)
  Sender: FDA-Public Use
  Company Number: US-BAYER-2012-032437

PATIENT
  Age: 26 Year
  Sex: Female
  Weight: 73 kg

DRUGS (14)
  1. YAZ [Suspect]
     Indication: CONTRACEPTION
     Dosage: UNK
     Dates: start: 20070723, end: 20080304
  2. ANALGESICS [Concomitant]
     Indication: MIGRAINE
     Dosage: UNK
     Dates: start: 20090101
  3. PHENERGAN HCL [Concomitant]
     Dosage: 25 MG, EVERY 4-6 HOURS AS NEEDED
     Route: 048
  4. PAXIL [Concomitant]
     Dosage: 20 MG, UNK, DAILY
     Route: 048
  5. EXTRA STRENGTH TYLENOL [Concomitant]
     Route: 048
  6. INHALERS [Concomitant]
  7. PERCOCET [Concomitant]
     Indication: FIBROMYALGIA
     Dosage: UNK
     Route: 048
     Dates: start: 20100101
  8. DARVON [Concomitant]
     Dosage: 100 MG, EVERY 4-6 HOURS AS NEEDED
  9. TRAMADOL HCL [Concomitant]
     Dosage: 50 MG, EVERY 4-6 HOURS AS NEEDED
  10. HYDROCODONE BITARTRATE AND ACETAMINOPHEN [Concomitant]
     Dosage: 7.5/750MG
     Route: 048
  11. TALWIN [Concomitant]
  12. CODEINE [Concomitant]
     Dosage: 30 MG, EVERY 4 HOURS AS NEEDED
  13. YAZ [Suspect]
     Indication: MENSTRUAL CYCLE MANAGEMENT
     Dosage: UNK
     Dates: start: 20100415, end: 20100601
  14. INHALERS [Concomitant]
     Indication: ASTHMA
     Dosage: UNK
     Dates: start: 20020101

REACTIONS (8)
  - VOMITING [None]
  - CHOLECYSTITIS CHRONIC [None]
  - PAIN [None]
  - INJURY [None]
  - CHOLELITHIASIS [None]
  - ABDOMINAL PAIN [None]
  - NAUSEA [None]
  - DIARRHOEA [None]
